FAERS Safety Report 10188278 (Version 1)
Quarter: 2014Q2

REPORT INFORMATION
  Report Type: Spontaneous
  Country: GB (occurrence: GB)
  Receive Date: 20140522
  Receipt Date: 20140522
  Transmission Date: 20141212
  Serious: Yes (Other)
  Sender: FDA-Public Use
  Company Number: GB-TEVA-481332ISR

PATIENT
  Age: 42 Year
  Sex: Female
  Weight: 70 kg

DRUGS (4)
  1. SODIUM VALPROATE [Suspect]
     Indication: HEADACHE
     Route: 048
  2. FOSTAIR [Concomitant]
  3. PREDNISOLONE [Concomitant]
  4. SALBUTAMOL [Concomitant]

REACTIONS (1)
  - Bronchospasm [Recovered/Resolved]
